FAERS Safety Report 14315950 (Version 13)
Quarter: 2019Q4

REPORT INFORMATION
  Report Type: Report from Study
  Country: ES (occurrence: ES)
  Receive Date: 20171221
  Receipt Date: 20191003
  Transmission Date: 20200122
  Serious: Yes (Hospitalization)
  Sender: FDA-Public Use
  Company Number: ES-BAXTER-2017BAX031535

PATIENT
  Age: 13 Year
  Sex: Female
  Weight: 37.7 kg

DRUGS (53)
  1. TRONOXAL 1G INYECTABLE [Suspect]
     Active Substance: IFOSFAMIDE
     Dosage: RESTARTED CYCLE 2 WITH 20% REDUCED DOSE
     Route: 042
     Dates: start: 20170829, end: 20170829
  2. TRONOXAL 1G INYECTABLE [Suspect]
     Active Substance: IFOSFAMIDE
     Dosage: CYCLE 5, FOR 3 DAYS. ON 23NOV2017 LAST DOSE PRIOR TO SAE
     Route: 042
     Dates: start: 20171121, end: 20171123
  3. ETOPOSIDE. [Suspect]
     Active Substance: ETOPOSIDE
     Dosage: CYCLE 2
     Route: 042
     Dates: end: 201709
  4. LENVATINIB [Suspect]
     Active Substance: LENVATINIB
     Route: 048
     Dates: start: 20180127, end: 20180203
  5. LENVATINIB [Suspect]
     Active Substance: LENVATINIB
     Route: 048
     Dates: start: 20180208, end: 20180215
  6. LENVATINIB [Suspect]
     Active Substance: LENVATINIB
     Route: 048
     Dates: start: 20180317, end: 20180318
  7. LENVATINIB [Suspect]
     Active Substance: LENVATINIB
     Route: 048
     Dates: start: 20180407, end: 20180415
  8. PARACETAMOL [Concomitant]
     Active Substance: ACETAMINOPHEN
     Indication: PAIN
     Route: 065
     Dates: start: 20171124
  9. ONDANSETRON [Concomitant]
     Active Substance: ONDANSETRON
     Indication: VOMITING
     Route: 065
     Dates: start: 20171124
  10. MACROGOL [Concomitant]
     Active Substance: POLYETHYLENE GLYCOLS
     Indication: CONSTIPATION
     Route: 065
     Dates: start: 20171124
  11. ETOPOSIDE. [Suspect]
     Active Substance: ETOPOSIDE
     Dosage: CYCLE 3, DAY 1 TO DAY 3
     Route: 042
     Dates: start: 20170926, end: 20170928
  12. ETOPOSIDE. [Suspect]
     Active Substance: ETOPOSIDE
     Dosage: CYCLE 5, FOR 3 DAYS. ON 23NOV2017 LAST DOSE PRIOR TO SAE
     Route: 042
     Dates: start: 20171121, end: 20171123
  13. LENVATINIB [Suspect]
     Active Substance: LENVATINIB
     Route: 048
     Dates: start: 20171218, end: 20180106
  14. LENVATINIB [Suspect]
     Active Substance: LENVATINIB
     Route: 048
     Dates: start: 20180224, end: 20180315
  15. LENVATINIB [Suspect]
     Active Substance: LENVATINIB
     Route: 048
     Dates: start: 20180402, end: 20180405
  16. LENVATINIB [Suspect]
     Active Substance: LENVATINIB
     Route: 048
     Dates: start: 20180528, end: 20180608
  17. ETOPOSIDE. [Suspect]
     Active Substance: ETOPOSIDE
     Indication: OSTEOSARCOMA
     Dosage: DAY-1 OF EACH 21 DAY CYCLE, DOSE: 100 MG/M2
     Route: 042
     Dates: start: 20170725, end: 20170725
  18. LENVATINIB [Suspect]
     Active Substance: LENVATINIB
     Route: 048
     Dates: start: 20180114, end: 20180119
  19. METAMIZOL [Concomitant]
     Active Substance: METAMIZOLE SODIUM
     Indication: PAIN
     Route: 065
     Dates: start: 20171124
  20. TRONOXAL 1G INYECTABLE [Suspect]
     Active Substance: IFOSFAMIDE
     Dosage: CYCLE 3, DAY 1 TO DAY 3
     Route: 042
     Dates: start: 20170926, end: 20170928
  21. LENVATINIB [Suspect]
     Active Substance: LENVATINIB
     Dosage: CYCLE 5
     Route: 048
     Dates: start: 20171121, end: 20171129
  22. LENVATINIB [Suspect]
     Active Substance: LENVATINIB
     Route: 048
     Dates: start: 20180430, end: 20180504
  23. LENVATINIB [Suspect]
     Active Substance: LENVATINIB
     Route: 048
     Dates: start: 20180514, end: 20180517
  24. TRONOXAL 1G INYECTABLE [Suspect]
     Active Substance: IFOSFAMIDE
     Dosage: DAY-3 OF EACH 21 DAY CYCLE, DOSE: 3000 MG/M2
     Route: 042
     Dates: start: 20170727, end: 20170727
  25. LENVATINIB [Suspect]
     Active Substance: LENVATINIB
     Indication: OSTEOSARCOMA
     Route: 048
     Dates: start: 20170725, end: 20170801
  26. LENVATINIB [Suspect]
     Active Substance: LENVATINIB
     Route: 048
     Dates: start: 20170803, end: 20170803
  27. LENVATINIB [Suspect]
     Active Substance: LENVATINIB
     Route: 048
     Dates: start: 20180205, end: 20180206
  28. LENVATINIB [Suspect]
     Active Substance: LENVATINIB
     Route: 048
     Dates: start: 20180325, end: 20180331
  29. LENVATINIB [Suspect]
     Active Substance: LENVATINIB
     Route: 048
     Dates: start: 20180519, end: 20180526
  30. HYDROCORTISONE. [Concomitant]
     Active Substance: HYDROCORTISONE
     Indication: PRODUCT USED FOR UNKNOWN INDICATION
     Route: 065
  31. TRONOXAL 1G INYECTABLE [Suspect]
     Active Substance: IFOSFAMIDE
     Indication: OSTEOSARCOMA
     Dosage: DAY-1 OF EACH 21 DAY CYCLE, DOSE: 3000 MG/M2
     Route: 042
     Dates: start: 20170725, end: 20170725
  32. TRONOXAL 1G INYECTABLE [Suspect]
     Active Substance: IFOSFAMIDE
     Dosage: CYCLE 4
     Route: 042
     Dates: start: 2017
  33. ETOPOSIDE. [Suspect]
     Active Substance: ETOPOSIDE
     Dosage: RESTARTED CYCLE 2 WITH 20% REDUCED DOSE
     Route: 042
     Dates: start: 20170829, end: 20170829
  34. LENVATINIB [Suspect]
     Active Substance: LENVATINIB
     Dosage: CYCLE 4
     Route: 048
     Dates: start: 2017
  35. LENVATINIB [Suspect]
     Active Substance: LENVATINIB
     Route: 048
     Dates: start: 20180320, end: 20180323
  36. LENVATINIB [Suspect]
     Active Substance: LENVATINIB
     Route: 048
     Dates: start: 20180506, end: 20180512
  37. LENVATINIB [Suspect]
     Active Substance: LENVATINIB
     Route: 048
     Dates: start: 20180618, end: 20180618
  38. TRONOXAL 1G INYECTABLE [Suspect]
     Active Substance: IFOSFAMIDE
     Dosage: CYCLE 2
     Route: 042
     Dates: end: 201709
  39. ETOPOSIDE. [Suspect]
     Active Substance: ETOPOSIDE
     Dosage: DAY-2 OF EACH 21 DAY CYCLE, DOSE: 100 MG/M2
     Route: 042
     Dates: start: 20170726, end: 20170726
  40. ETOPOSIDE. [Suspect]
     Active Substance: ETOPOSIDE
     Dosage: DAY-3 OF EACH 21 DAY CYCLE, DOSE: 100 MG/M2
     Route: 042
     Dates: start: 20170727, end: 20170727
  41. LENVATINIB [Suspect]
     Active Substance: LENVATINIB
     Dosage: CYCLE 2 WITH 20% REDUCED DOSE, ONGOING
     Route: 048
     Dates: start: 20170829
  42. LENVATINIB [Suspect]
     Active Substance: LENVATINIB
     Route: 048
     Dates: start: 20180108, end: 20180112
  43. LENVATINIB [Suspect]
     Active Substance: LENVATINIB
     Route: 048
     Dates: start: 20180121, end: 20180125
  44. LENVATINIB [Suspect]
     Active Substance: LENVATINIB
     Route: 048
     Dates: start: 20180217, end: 20180222
  45. LENVATINIB [Suspect]
     Active Substance: LENVATINIB
     Route: 048
     Dates: start: 20180610, end: 20180616
  46. LENVATINIB [Suspect]
     Active Substance: LENVATINIB
     Route: 048
     Dates: start: 20180627, end: 20180703
  47. LENVATINIB [Suspect]
     Active Substance: LENVATINIB
     Route: 048
     Dates: start: 20180705, end: 20180716
  48. BENZYDAMINE [Concomitant]
     Active Substance: BENZYDAMINE
     Indication: VULVOVAGINAL PAIN
     Route: 065
     Dates: start: 20171124
  49. TRONOXAL 1G INYECTABLE [Suspect]
     Active Substance: IFOSFAMIDE
     Dosage: DAY-2 OF EACH 21 DAY CYCLE, DOSE: 3000 MG/M2
     Route: 042
     Dates: start: 20170726, end: 20170726
  50. ETOPOSIDE. [Suspect]
     Active Substance: ETOPOSIDE
     Dosage: CYCLE 4
     Route: 042
     Dates: start: 2017
  51. LENVATINIB [Suspect]
     Active Substance: LENVATINIB
     Dosage: RESTARTED
     Route: 048
     Dates: start: 20170807, end: 20170828
  52. LENVATINIB [Suspect]
     Active Substance: LENVATINIB
     Route: 048
     Dates: start: 20180417, end: 20180428
  53. DEXCHLORPHENIRAMINE [Concomitant]
     Active Substance: DEXCHLORPHENIRAMINE
     Indication: PRODUCT USED FOR UNKNOWN INDICATION
     Route: 065

REACTIONS (7)
  - Urinary tract infection [Recovered/Resolved]
  - Gastritis [Recovered/Resolved]
  - Thrombocytopenia [Recovered/Resolved]
  - Leukopenia [Recovered/Resolved]
  - Cholecystitis [Recovered/Resolved]
  - Neutropenia [Recovered/Resolved]
  - Gastritis [Recovered/Resolved]

NARRATIVE: CASE EVENT DATE: 20170728
